FAERS Safety Report 6581722-3 (Version None)
Quarter: 2010Q1

REPORT INFORMATION
  Report Type: 
  Country: None (occurrence: None)
  Receive Date: 20100215
  Receipt Date: 20100201
  Transmission Date: 20100710
  Serious: Yes (Hospitalization, Disabling, Other)
  Sender: FDA-Public Use
  Company Number: PHEH2008US07165

PATIENT
  Sex: Male
  Weight: 72.245 kg

DRUGS (53)
  1. ZOMETA [Suspect]
     Dosage: 1 MG, QMO
     Dates: start: 20020101, end: 20040801
  2. ZOMETA [Suspect]
     Dosage: 4 MG, QMO
     Route: 042
  3. LUPRON [Concomitant]
     Dosage: 22.5 MG, Q3MO
     Route: 030
     Dates: start: 20021001
  4. RADIATION THERAPY [Concomitant]
  5. CLEOCIN [Concomitant]
  6. CLINDAMYCIN [Concomitant]
     Dosage: 150 MG, QID
  7. CASODEX [Concomitant]
  8. CALCIUM [Concomitant]
  9. VITAMIN D [Concomitant]
  10. COUMADIN [Concomitant]
     Dosage: 5 MG / DAILY
     Route: 048
  11. BUSPAR [Concomitant]
     Dosage: UNK
  12. XANAX [Concomitant]
     Dosage: UNK
  13. KEFLEX [Concomitant]
     Indication: TOOTHACHE
     Dosage: UNK
  14. ZOLOFT [Concomitant]
     Dosage: 50 MG / DAILY
     Route: 048
  15. ALPRAZOLAM [Concomitant]
     Dosage: 0.25MG / EVERY NIGHT AT BEDTIME
  16. ELIGARD [Concomitant]
     Dosage: UNK / EVERY 3 MONTHS
  17. QUININE SULFATE [Concomitant]
     Indication: MUSCLE SPASMS
     Dosage: UNK / PRN
  18. MIRALAX [Concomitant]
     Dosage: UNK / DAILY
  19. ASPIRIN [Concomitant]
     Dosage: 81 MG / DAILY
  20. VIOXX [Concomitant]
     Dosage: 25 MG / DAILY
     Route: 048
  21. MEGESTROL ACETATE [Concomitant]
     Dosage: 40 MG / BID
  22. REMERON [Concomitant]
     Dosage: 45 MG / QHS
  23. LISINOPRIL [Concomitant]
     Dosage: UNK
  24. SPIRAMYCIN ACETYLATE [Concomitant]
     Dosage: UNK
  25. DIGOXIN [Concomitant]
     Dosage: UNK
  26. GLYCILAX [Concomitant]
     Dosage: UNK
  27. AVASTIN [Concomitant]
     Dosage: UNK
     Dates: start: 20070502
  28. SPIRONOLACTONE [Concomitant]
     Dosage: 25MG / ONCE AT BEDTIME
  29. MIDODRINE HYDROCHLORIDE [Concomitant]
     Dosage: 5MG / TWICE DAILY
  30. GLYCOLAX [Concomitant]
     Dosage: 17 GM / BEDTIME
  31. REGLAN [Concomitant]
     Dosage: 10MG
  32. ALPHAGAN P [Concomitant]
     Dosage: 1 DROP RIGHT EYE / BID
  33. MIRTAZAPINE [Concomitant]
     Dosage: 30 MG / 1/2 AT BEDTIME
  34. MUCINEX [Concomitant]
     Dosage: UNK
  35. TEGRETOL [Concomitant]
     Dosage: 200MG / TID
  36. TRAMADOL [Concomitant]
     Dosage: UNK
  37. TOBRAMYCIN [Concomitant]
     Dosage: UNK
  38. TYLENOL-500 [Concomitant]
     Dosage: UNK
  39. ULTRAM [Concomitant]
     Dosage: 50 MG/ QID PRN
  40. ZITHROMAX [Concomitant]
     Dosage: UNK
  41. SOMA [Concomitant]
     Dosage: UNK
  42. DOXYCYCLINE [Concomitant]
     Dosage: 100MG / TWICE DAILY
  43. OPTIVAR [Concomitant]
     Dosage: UNK
     Dates: start: 20060405
  44. WARFARIN [Concomitant]
     Dosage: UNK
  45. MEGACE [Concomitant]
     Dosage: 5 CCS / BEFORE MEALS
     Route: 048
  46. PYRIDOXINE [Concomitant]
     Dosage: UNK
  47. PROAMATINE [Concomitant]
     Dosage: 5 MG / TWICE DAILY
     Route: 048
  48. LANOXIN [Concomitant]
     Dosage: 0.125 MG / DAILY
  49. PARADEX [Concomitant]
     Dosage: UNK
  50. TRIMETHOPRIM [Concomitant]
     Dosage: 100/160 / BID
     Route: 048
  51. BACTRIM [Concomitant]
     Dosage: UNK
  52. PRINIVIL [Concomitant]
     Dosage: 2.5 MG / BEDTIME
  53. NEXIUM [Concomitant]

REACTIONS (100)
  - ABSCESS [None]
  - ACTIVITIES OF DAILY LIVING IMPAIRED [None]
  - ANAEMIA [None]
  - ANHEDONIA [None]
  - ANXIETY [None]
  - ARRHYTHMIA [None]
  - ARTERIOSCLEROSIS [None]
  - ARTHROPATHY [None]
  - AZOTAEMIA [None]
  - BACK PAIN [None]
  - BALANCE DISORDER [None]
  - BONE CYST [None]
  - BONE DISORDER [None]
  - BUNDLE BRANCH BLOCK LEFT [None]
  - BURSITIS [None]
  - CALCULUS URINARY [None]
  - CARDIAC FAILURE CONGESTIVE [None]
  - CARDIOMEGALY [None]
  - CARDIOMYOPATHY [None]
  - CATARACT [None]
  - CATARACT OPERATION [None]
  - CEREBRAL ATROPHY [None]
  - CHRONIC OBSTRUCTIVE PULMONARY DISEASE [None]
  - COLITIS ISCHAEMIC [None]
  - CONFUSIONAL STATE [None]
  - CONSTIPATION [None]
  - CORONARY ARTERY DISEASE [None]
  - DEAFNESS [None]
  - DEBRIDEMENT [None]
  - DECREASED ACTIVITY [None]
  - DECREASED APPETITE [None]
  - DEEP VEIN THROMBOSIS [None]
  - DILATATION ATRIAL [None]
  - DIZZINESS [None]
  - DYSAESTHESIA [None]
  - DYSPNOEA [None]
  - ECCHYMOSIS [None]
  - EJECTION FRACTION DECREASED [None]
  - FALL [None]
  - FATIGUE [None]
  - GASTROOESOPHAGEAL REFLUX DISEASE [None]
  - GINGIVITIS [None]
  - GLAUCOMA [None]
  - HAEMORRHAGIC DIATHESIS [None]
  - HEADACHE [None]
  - HEART VALVE INCOMPETENCE [None]
  - HIGH FREQUENCY ABLATION [None]
  - HYPOAESTHESIA [None]
  - HYPOCOAGULABLE STATE [None]
  - HYPOREFLEXIA [None]
  - IMPAIRED HEALING [None]
  - INFLAMMATION [None]
  - INJURY [None]
  - INTERMITTENT CLAUDICATION [None]
  - JAW DISORDER [None]
  - JAW FRACTURE [None]
  - JOINT EFFUSION [None]
  - LEFT VENTRICULAR DYSFUNCTION [None]
  - LUMBAR SPINAL STENOSIS [None]
  - MACULAR DEGENERATION [None]
  - MAJOR DEPRESSION [None]
  - MASTICATION DISORDER [None]
  - MENISCAL DEGENERATION [None]
  - MENISCUS LESION [None]
  - MENTAL DISORDER [None]
  - METASTASES TO BONE [None]
  - METASTATIC NEOPLASM [None]
  - MUSCULAR WEAKNESS [None]
  - MUSCULOSKELETAL DISCOMFORT [None]
  - NEURALGIA [None]
  - OSTEOARTHRITIS [None]
  - OSTEOMYELITIS [None]
  - OSTEONECROSIS [None]
  - OSTEOPENIA [None]
  - OTITIS EXTERNA [None]
  - PAIN [None]
  - PAIN IN EXTREMITY [None]
  - PANCREATITIS [None]
  - PHYSICAL DISABILITY [None]
  - PNEUMONIA [None]
  - POLYMYALGIA RHEUMATICA [None]
  - POSTURE ABNORMAL [None]
  - RENAL CYST [None]
  - ROTATOR CUFF SYNDROME [None]
  - SINUSITIS [None]
  - SMALL INTESTINAL OBSTRUCTION [None]
  - SOMNOLENCE [None]
  - SPINAL COLUMN STENOSIS [None]
  - SPINAL OSTEOARTHRITIS [None]
  - SUICIDAL IDEATION [None]
  - SUPRAVENTRICULAR EXTRASYSTOLES [None]
  - SYNCOPE [None]
  - THROMBOPHLEBITIS [None]
  - TOOTH EXTRACTION [None]
  - TOOTH IMPACTED [None]
  - TOOTHACHE [None]
  - URINARY INCONTINENCE [None]
  - VISUAL IMPAIRMENT [None]
  - VITREOUS DETACHMENT [None]
  - WEIGHT DECREASED [None]
